FAERS Safety Report 6206984-3 (Version None)
Quarter: 2009Q2

REPORT INFORMATION
  Report Type: 
  Country: None (occurrence: None)
  Receive Date: 20090528
  Receipt Date: 20090521
  Transmission Date: 20091009
  Serious: Yes (Other)
  Sender: FDA-Public Use
  Company Number: US-ROCHE-634302

PATIENT
  Age: 51 Year
  Sex: Female

DRUGS (6)
  1. BONIVA [Suspect]
     Indication: OSTEOPOROSIS
     Route: 048
     Dates: start: 20081231, end: 20090321
  2. DIAZEPAM [Concomitant]
     Indication: SOMNOLENCE
     Dosage: FREQUENCY: 1-2 TIMES A WEEK; AT NIGHT AS NEEDED FOR SLEEP
  3. LORCET-HD [Concomitant]
     Indication: MIGRAINE
     Dosage: AS NEEDED
  4. IMITREX [Concomitant]
     Indication: MIGRAINE
     Dosage: AS NEEDED
  5. MESTINON [Concomitant]
  6. PREDNISONE [Concomitant]
     Dosage: IN THE MORNING

REACTIONS (5)
  - ABDOMINAL PAIN UPPER [None]
  - DENTAL CARIES [None]
  - TOOTH FRACTURE [None]
  - ULCER [None]
  - WEIGHT DECREASED [None]
